FAERS Safety Report 24254794 (Version 1)
Quarter: 2024Q3

REPORT INFORMATION
  Report Type: Report from Study
  Country: US (occurrence: None)
  Receive Date: 20240827
  Receipt Date: 20240827
  Transmission Date: 20241016
  Serious: Yes (Hospitalization, Other)
  Sender: ASTRAZENECA
  Company Number: 2024A190426

PATIENT
  Sex: Female

DRUGS (1)
  1. CALQUENCE [Suspect]
     Active Substance: ACALABRUTINIB
     Indication: B-cell small lymphocytic lymphoma
     Route: 048
     Dates: start: 202204

REACTIONS (5)
  - Cardiac failure acute [Unknown]
  - Dyspnoea [Unknown]
  - Pain [Unknown]
  - Swelling [Unknown]
  - Hypervolaemia [Unknown]
